FAERS Safety Report 13804761 (Version 1)
Quarter: 2017Q3

REPORT INFORMATION
  Report Type: Spontaneous
  Country: US (occurrence: US)
  Receive Date: 20170728
  Receipt Date: 20170728
  Transmission Date: 20171127
  Serious: No
  Sender: FDA-Public Use
  Company Number: US-PFIZER INC-2017325609

PATIENT
  Age: 16 Year
  Sex: Female
  Weight: 52 kg

DRUGS (6)
  1. NALTREXONE [Concomitant]
     Active Substance: NALTREXONE
     Indication: ANXIETY
  2. ABILIFY [Concomitant]
     Active Substance: ARIPIPRAZOLE
     Indication: MOOD ALTERED
     Dosage: UNK
  3. DEPO-PROVERA [Suspect]
     Active Substance: MEDROXYPROGESTERONE ACETATE
     Indication: CONTRACEPTION
     Dosage: UNK, EVERY THREE MONTHS
  4. NALTREXONE [Concomitant]
     Active Substance: NALTREXONE
     Indication: DEPRESSION
     Dosage: UNK
  5. EFFEXOR [Concomitant]
     Active Substance: VENLAFAXINE HYDROCHLORIDE
     Indication: DEPRESSION
     Dosage: UNK
  6. EFFEXOR [Concomitant]
     Active Substance: VENLAFAXINE HYDROCHLORIDE
     Indication: ANXIETY

REACTIONS (1)
  - Drug screen false positive [Unknown]

NARRATIVE: CASE EVENT DATE: 20170724
